FAERS Safety Report 5376974-1 (Version None)
Quarter: 2007Q3

REPORT INFORMATION
  Report Type: 
  Country: None (occurrence: None)
  Receive Date: 20070703
  Receipt Date: 20070625
  Transmission Date: 20080115
  Serious: Yes (Hospitalization)
  Sender: FDA-Public Use
  Company Number: DE-BAYER-200614121GDS

PATIENT
  Age: 45 Year
  Sex: Male

DRUGS (1)
  1. CIPROFLOXACIN [Suspect]
     Indication: URINARY TRACT INFECTION
     Route: 065

REACTIONS (2)
  - DELUSIONAL DISORDER, UNSPECIFIED TYPE [None]
  - SELF INJURIOUS BEHAVIOUR [None]
